FAERS Safety Report 14505720 (Version 2)
Quarter: 2018Q2

REPORT INFORMATION
  Report Type: Spontaneous
  Country: US (occurrence: US)
  Receive Date: 20180208
  Receipt Date: 20180423
  Transmission Date: 20180711
  Serious: Yes (Other)
  Sender: FDA-Public Use
  Company Number: US-REGENERON PHARMACEUTICALS, INC.-2018-12861

PATIENT

DRUGS (2)
  1. EYLEA [Suspect]
     Active Substance: AFLIBERCEPT
     Indication: NEOVASCULAR AGE-RELATED MACULAR DEGENERATION
     Dosage: 2 MG / 0.05 ML, EVERY 4 WEEKS, RIGHT EYE (OD)
     Route: 031
     Dates: start: 20120203
  2. EYLEA [Suspect]
     Active Substance: AFLIBERCEPT
     Dosage: 2 MG / 0.05 ML, EVERY 4 WEEKS, LAST DOSE
     Dates: start: 20180125, end: 20180125

REACTIONS (2)
  - Visual acuity reduced transiently [Recovered/Resolved]
  - Ocular surface disease [Recovered/Resolved]

NARRATIVE: CASE EVENT DATE: 20180129
